FAERS Safety Report 25139793 (Version 1)
Quarter: 2025Q1

REPORT INFORMATION
  Report Type: Other
  Country: FR (occurrence: FR)
  Receive Date: 20250331
  Receipt Date: 20250331
  Transmission Date: 20250408
  Serious: Yes (Hospitalization)
  Sender: ZYDUS PHARM
  Company Number: None

PATIENT

DRUGS (1)
  1. ATORVASTATIN [Suspect]
     Active Substance: ATORVASTATIN
     Indication: Product used for unknown indication
     Route: 048
     Dates: start: 2022, end: 202409

REACTIONS (3)
  - Hepatic cytolysis [Recovering/Resolving]
  - Myositis [Recovering/Resolving]
  - HMG CoA reductase antibody test [Recovering/Resolving]

NARRATIVE: CASE EVENT DATE: 20240701
